FAERS Safety Report 14766555 (Version 1)
Quarter: 2018Q2

REPORT INFORMATION
  Report Type: Report from Study
  Country: JP (occurrence: JP)
  Receive Date: 20180416
  Receipt Date: 20180416
  Transmission Date: 20180711
  Serious: Yes (Hospitalization)
  Sender: FDA-Public Use
  Company Number: JP-B.I. PHARMACEUTICALS,INC./RIDGEFIELD-2018-NB-001961

PATIENT
  Age: 79 Year
  Sex: Female
  Weight: 54.1 kg

DRUGS (8)
  1. RENIVACE [Concomitant]
     Active Substance: ENALAPRIL
     Indication: HYPERTENSION
     Route: 048
  2. AZUNOL [Concomitant]
     Active Substance: SODIUM GUALENATE
     Indication: HAEMORRHOIDS
     Dates: start: 20180125
  3. AFATINIB [Suspect]
     Active Substance: AFATINIB
     Indication: LUNG ADENOCARCINOMA
     Route: 065
     Dates: start: 20171211, end: 20180116
  4. AFATINIB [Suspect]
     Active Substance: AFATINIB
     Route: 065
     Dates: start: 20180130, end: 20180131
  5. AFATINIB [Suspect]
     Active Substance: AFATINIB
     Route: 065
     Dates: start: 20180123, end: 20180129
  6. BEVACIZUMAB RECOMBINANT [Suspect]
     Active Substance: BEVACIZUMAB
     Indication: LUNG ADENOCARCINOMA
     Route: 065
     Dates: start: 20171211, end: 20180125
  7. CILOSTAZOL. [Concomitant]
     Active Substance: CILOSTAZOL
     Indication: ARTERIAL OCCLUSIVE DISEASE
     Route: 048
  8. TAKECAB [Concomitant]
     Active Substance: VONOPRAZAN FUMURATE
     Indication: GASTROOESOPHAGEAL REFLUX DISEASE
     Route: 048

REACTIONS (5)
  - Dehydration [Unknown]
  - Diarrhoea [Unknown]
  - Nasopharyngitis [Unknown]
  - Hyperuricaemia [Recovered/Resolved]
  - Renal disorder [Unknown]

NARRATIVE: CASE EVENT DATE: 20180115
